FAERS Safety Report 7466237-2 (Version None)
Quarter: 2011Q2

REPORT INFORMATION
  Report Type: 
  Country: None (occurrence: None)
  Receive Date: 20110509
  Receipt Date: 20101223
  Transmission Date: 20111010
  Serious: No
  Sender: FDA-Public Use
  Company Number: US-SANOFI-AVENTIS-2010SA078395

PATIENT
  Age: 48 Year
  Sex: Male

DRUGS (2)
  1. APIDRA [Suspect]
     Dosage: DOSE: 6-12 UNITS ON SLIDING SCALE.
     Route: 058
     Dates: start: 20090101
  2. APIDRA [Suspect]
     Indication: TYPE 2 DIABETES MELLITUS
     Dosage: DOSE: 6-12 UNITS ON SLIDING SCALE.
     Route: 058

REACTIONS (9)
  - BALANCE DISORDER [None]
  - PRODUCT QUALITY ISSUE [None]
  - MOTION SICKNESS [None]
  - BACK PAIN [None]
  - HEPATIC PAIN [None]
  - BLOOD GLUCOSE INCREASED [None]
  - DRUG INEFFECTIVE [None]
  - MUSCULOSKELETAL STIFFNESS [None]
  - VISION BLURRED [None]
